FAERS Safety Report 19662173 (Version 1)
Quarter: 2021Q3

REPORT INFORMATION
  Report Type: Spontaneous
  Country: HU (occurrence: HU)
  Receive Date: 20210805
  Receipt Date: 20210805
  Transmission Date: 20211014
  Serious: Yes (Other)
  Sender: FDA-Public Use
  Company Number: HU-ALXN-A202108721

PATIENT
  Age: 13 Year
  Sex: Female

DRUGS (2)
  1. SOLIRIS [Suspect]
     Active Substance: ECULIZUMAB
     Indication: ATYPICAL HAEMOLYTIC URAEMIC SYNDROME
     Dosage: 900 MG, Q2W
     Route: 065
     Dates: start: 2014
  2. SOLIRIS [Suspect]
     Active Substance: ECULIZUMAB
     Dosage: 1200 MG, Q2W
     Route: 065

REACTIONS (3)
  - Total complement activity increased [Unknown]
  - Drug level decreased [Unknown]
  - Crohn^s disease [Recovering/Resolving]
